FAERS Safety Report 11906862 (Version 1)
Quarter: 2016Q1

REPORT INFORMATION
  Report Type: Spontaneous
  Country: US (occurrence: US)
  Receive Date: 20160111
  Receipt Date: 20160111
  Transmission Date: 20160526
  Serious: No
  Sender: FDA-Public Use
  Company Number: US-BAYER-2016-005378

PATIENT
  Age: 46 Year
  Sex: Female

DRUGS (2)
  1. ZYRTEC [Concomitant]
     Active Substance: CETIRIZINE HYDROCHLORIDE
  2. CLARITIN [Suspect]
     Active Substance: LORATADINE
     Dosage: 2 DF, UNK
     Dates: start: 20160108

REACTIONS (3)
  - Product use issue [None]
  - Off label use [None]
  - Feeling abnormal [None]

NARRATIVE: CASE EVENT DATE: 20160108
